FAERS Safety Report 12241239 (Version 1)
Quarter: 2016Q2

REPORT INFORMATION
  Report Type: Spontaneous
  Country: US (occurrence: None)
  Receive Date: 20160405
  Receipt Date: 20160405
  Transmission Date: 20160815
  Serious: Yes (Life-Threatening)
  Sender: FDA-Public Use
  Company Number: None

PATIENT
  Age: 67 Year
  Sex: Female
  Weight: 68.49 kg

DRUGS (4)
  1. ASPIRIN. [Concomitant]
     Active Substance: ASPIRIN
  2. CYANOCOBALAMIN 1000 MCG AMERI PHAR [Suspect]
     Active Substance: CYANOCOBALAMIN
     Indication: COAGULOPATHY
     Route: 030
     Dates: start: 20160401, end: 20160404
  3. CYANOCOBALAMIN 1000 MCG AMERI PHAR [Suspect]
     Active Substance: CYANOCOBALAMIN
     Indication: ATRIAL FIBRILLATION
     Route: 030
     Dates: start: 20160401, end: 20160404
  4. SYNTHROID [Concomitant]
     Active Substance: LEVOTHYROXINE SODIUM

REACTIONS (1)
  - Thrombosis [None]

NARRATIVE: CASE EVENT DATE: 20160325
